FAERS Safety Report 5596362-2 (Version None)
Quarter: 2008Q1

REPORT INFORMATION
  Report Type: 
  Country: None (occurrence: None)
  Receive Date: 20080118
  Receipt Date: 20080109
  Transmission Date: 20080703
  Serious: Yes (Other)
  Sender: FDA-Public Use
  Company Number: US-PFIZER INC-2008003047

PATIENT
  Sex: Female
  Weight: 57.2 kg

DRUGS (2)
  1. DEPO-MEDROL [Suspect]
     Indication: ROTATOR CUFF SYNDROME
  2. LIDOCAINE [Suspect]
     Indication: ROTATOR CUFF SYNDROME

REACTIONS (2)
  - PRURITUS [None]
  - RASH [None]
